FAERS Safety Report 14585890 (Version 4)
Quarter: 2018Q3

REPORT INFORMATION
  Report Type: Spontaneous
  Country: US (occurrence: US)
  Receive Date: 20180301
  Receipt Date: 20180702
  Transmission Date: 20181010
  Serious: No
  Sender: FDA-Public Use
  Company Number: US-PFIZER INC-2017508332

PATIENT
  Age: 47 Year
  Sex: Female
  Weight: 82.54 kg

DRUGS (7)
  1. DOCETAXEL. [Suspect]
     Active Substance: DOCETAXEL
     Indication: BREAST CANCER METASTATIC
     Dosage: 135 MG,  1 TO 3 WEEKS, THREE CYCLES
     Dates: end: 20140924
  2. TAXOTERE [Suspect]
     Active Substance: DOCETAXEL
     Indication: CHEMOTHERAPY
     Dosage: UNK
     Dates: start: 2004
  3. DOCETAXEL. [Suspect]
     Active Substance: DOCETAXEL
     Indication: BREAST CANCER FEMALE
     Dosage: 46 MG, 1 TO 3 WEEKS, THREE CYCLES
     Dates: start: 20140825
  4. DOCETAXEL. [Suspect]
     Active Substance: DOCETAXEL
     Indication: CHEMOTHERAPY
     Dosage: UNK
     Dates: start: 2004
  5. TAXOTERE [Suspect]
     Active Substance: DOCETAXEL
     Indication: BREAST CANCER FEMALE
     Dosage: 46 MG, 1 TO 3 WEEKS, THREE CYCLES
     Dates: start: 20140825
  6. TAXOTERE [Suspect]
     Active Substance: DOCETAXEL
     Indication: BREAST CANCER METASTATIC
     Dosage: 135 MG,  1 TO 3 WEEKS, THREE CYCLES
     Dates: end: 20140924
  7. TAXOL [Concomitant]
     Active Substance: PACLITAXEL
     Dosage: UNK

REACTIONS (7)
  - Neoplasm recurrence [Unknown]
  - Alopecia [Not Recovered/Not Resolved]
  - Hair disorder [Not Recovered/Not Resolved]
  - Hair colour changes [Not Recovered/Not Resolved]
  - Madarosis [Not Recovered/Not Resolved]
  - Hair texture abnormal [Not Recovered/Not Resolved]
  - Neoplasm progression [Unknown]

NARRATIVE: CASE EVENT DATE: 201409
